FAERS Safety Report 8044750-7 (Version None)
Quarter: 2012Q1

REPORT INFORMATION
  Report Type: 
  Country: None (occurrence: None)
  Receive Date: 20120113
  Receipt Date: 20120109
  Transmission Date: 20120608
  Serious: Yes (Other)
  Sender: FDA-Public Use
  Company Number: US-ELI_LILLY_AND_COMPANY-US201110004773

PATIENT
  Age: 67 Year
  Sex: Female

DRUGS (4)
  1. LANTUS [Concomitant]
     Indication: DIABETES MELLITUS
     Dosage: 55 ML, QD
  2. CYMBALTA [Suspect]
     Indication: ARTHRITIS
     Dosage: 30 MG, QD
  3. DILAUDID [Concomitant]
     Indication: NECK PAIN
  4. CYMBALTA [Suspect]
     Dosage: 60 MG, QD

REACTIONS (4)
  - NERVOUSNESS [None]
  - CATARACT [None]
  - EYE DISORDER [None]
  - NODULE [None]
